FAERS Safety Report 7995978-3 (Version None)
Quarter: 2011Q4

REPORT INFORMATION
  Report Type: 
  Country: None (occurrence: None)
  Receive Date: 20111220
  Receipt Date: 20111215
  Transmission Date: 20120403
  Serious: Yes (Life-Threatening, Hospitalization)
  Sender: FDA-Public Use
  Company Number: US-ASTRAZENECA-2011SE76191

PATIENT
  Age: 52 Year
  Sex: Male
  Weight: 126.6 kg

DRUGS (10)
  1. SEROQUEL [Suspect]
     Indication: BIPOLAR DISORDER
     Route: 048
     Dates: start: 20100301, end: 20111001
  2. UNSPECIFIED MEDICATIONS [Suspect]
     Route: 065
  3. SEROQUEL [Suspect]
     Indication: BIPOLAR I DISORDER
     Route: 048
     Dates: start: 20100301, end: 20111001
  4. DOXEPIN [Concomitant]
     Route: 048
  5. RISPERIDONE [Concomitant]
     Route: 048
  6. ABILIFY [Concomitant]
     Route: 048
  7. DULOXETINE HYDROCHLORIDE [Concomitant]
     Route: 048
  8. ASPIRIN [Concomitant]
     Indication: CARDIAC DISORDER
     Route: 048
  9. TRAZODONE HCL [Concomitant]
     Route: 048
  10. WATER PILLS POTASSIUM [Concomitant]
     Indication: HYPERTENSION
     Route: 048

REACTIONS (6)
  - SUICIDE ATTEMPT [None]
  - THERAPEUTIC RESPONSE UNEXPECTED [None]
  - MEMORY IMPAIRMENT [None]
  - ADVERSE DRUG REACTION [None]
  - INSOMNIA [None]
  - DRUG DOSE OMISSION [None]
